FAERS Safety Report 12651809 (Version 1)
Quarter: 2016Q3

REPORT INFORMATION
  Report Type: Spontaneous
  Country: US (occurrence: US)
  Receive Date: 20160815
  Receipt Date: 20160815
  Transmission Date: 20161109
  Serious: No
  Sender: FDA-Public Use
  Company Number: US-GALDERMA-US-GDP-09406011

PATIENT
  Age: 55 Year
  Sex: Female

DRUGS (3)
  1. DIFFERIN GEL [Suspect]
     Active Substance: ADAPALENE
     Indication: ACNE
     Route: 061
     Dates: start: 200903, end: 20090511
  2. ORACEA [Concomitant]
     Active Substance: DOXYCYCLINE
     Route: 048
  3. DIFFERIN GEL [Suspect]
     Active Substance: ADAPALENE
     Indication: ROSACEA

REACTIONS (9)
  - Rash erythematous [Recovered/Resolved]
  - Dermatitis contact [Recovered/Resolved]
  - Skin ulcer [Recovered/Resolved]
  - Pain of skin [Recovered/Resolved]
  - Erythema [Recovered/Resolved]
  - Acne [Recovered/Resolved]
  - Rash macular [Recovered/Resolved]
  - Rosacea [Recovered/Resolved]
  - Product use issue [Recovered/Resolved]

NARRATIVE: CASE EVENT DATE: 200903
